FAERS Safety Report 24119560 (Version 2)
Quarter: 2024Q3

REPORT INFORMATION
  Report Type: Spontaneous
  Country: US (occurrence: US)
  Receive Date: 20240722
  Receipt Date: 20240724
  Transmission Date: 20241017
  Serious: Yes (Other)
  Sender: PFIZER
  Company Number: US-PFIZER INC-PV202400094499

PATIENT
  Age: 60 Year
  Sex: Male

DRUGS (2)
  1. SOMAVERT [Suspect]
     Active Substance: PEGVISOMANT
     Indication: Acromegaly
     Dosage: UNK (STARTED AT LOWER DOSE)
  2. SOMAVERT [Suspect]
     Active Substance: PEGVISOMANT
     Dosage: UNK (WENT TO A HIGHER DOSE)

REACTIONS (4)
  - Spinal operation [Unknown]
  - Therapeutic product effect incomplete [Unknown]
  - Injection site reaction [Recovered/Resolved]
  - Hepatic enzyme abnormal [Recovering/Resolving]

NARRATIVE: CASE EVENT DATE: 20240101
